FAERS Safety Report 11742664 (Version 1)
Quarter: 2015Q4

REPORT INFORMATION
  Report Type: Report from Study
  Country: CA (occurrence: CA)
  Receive Date: 20151116
  Receipt Date: 20151116
  Transmission Date: 20160304
  Serious: Yes (Hospitalization)
  Sender: FDA-Public Use
  Company Number: CA-JNJFOC-20151111968

PATIENT
  Age: 62 Year
  Sex: Male
  Weight: 79 kg

DRUGS (1)
  1. SIMPONI [Suspect]
     Active Substance: GOLIMUMAB
     Indication: COLITIS ULCERATIVE
     Route: 058
     Dates: start: 20150930

REACTIONS (1)
  - Intestinal resection [Unknown]

NARRATIVE: CASE EVENT DATE: 201510
